FAERS Safety Report 24363799 (Version 4)
Quarter: 2024Q4

REPORT INFORMATION
  Report Type: Report from Study
  Country: DE (occurrence: DE)
  Receive Date: 20240925
  Receipt Date: 20241210
  Transmission Date: 20250115
  Serious: Yes (Hospitalization, Other)
  Sender: PFIZER
  Company Number: DE-BRISTOL-MYERS SQUIBB COMPANY-2024-120630

PATIENT
  Age: 70 Year
  Sex: Male

DRUGS (14)
  1. FILGRASTIM [Suspect]
     Active Substance: FILGRASTIM
     Dosage: UNK
     Dates: start: 20160124
  2. CARBOPLATIN [Suspect]
     Active Substance: CARBOPLATIN
     Indication: Non-small cell lung cancer
     Dosage: 128 MG, WEEKLY
     Route: 042
     Dates: start: 20240703, end: 20240815
  3. YERVOY [Suspect]
     Active Substance: IPILIMUMAB
     Indication: Non-small cell lung cancer
     Dosage: FREQ:6 WK;
     Route: 042
     Dates: start: 20240703
  4. OPDIVO [Suspect]
     Active Substance: NIVOLUMAB
     Indication: Non-small cell lung cancer
     Dosage: 360 MG, EVERY 3 WEEKS
     Route: 042
     Dates: start: 20240703
  5. DIAZEPAM [Concomitant]
     Active Substance: DIAZEPAM
     Dosage: UNK
     Dates: start: 20240724
  6. LEVOTHYROXINE SODIUM [Concomitant]
     Active Substance: LEVOTHYROXINE SODIUM
     Dosage: UNK
     Dates: start: 20160101
  7. CALCIMAGON [CALCIUM] [Concomitant]
     Dosage: 500 MG/400 I.E.
     Dates: start: 20160124
  8. CALCIMAGON [CALCIUM] [Concomitant]
     Dosage: 500 MG/400 I.E.
     Dates: start: 20240808
  9. NALOXONE HYDROCHLORIDE\TILIDINE HYDROCHLORIDE [Concomitant]
     Active Substance: NALOXONE HYDROCHLORIDE\TILIDINE HYDROCHLORIDE
     Dosage: 50/4
     Dates: start: 20240710
  10. ATORVASTATIN [Concomitant]
     Active Substance: ATORVASTATIN
     Dosage: UNK
     Dates: start: 20160101
  11. ASPIRIN [Concomitant]
     Active Substance: ASPIRIN
     Dosage: UNK
     Dates: start: 20160101
  12. METAMIZOL [Concomitant]
     Active Substance: METAMIZOLE SODIUM
     Dosage: UNK
     Dates: start: 20240701
  13. CANDESARTAN [Concomitant]
     Active Substance: CANDESARTAN
     Dosage: UNK
     Dates: start: 20160101
  14. CHLORTHALIDONE [Concomitant]
     Active Substance: CHLORTHALIDONE
     Dosage: UNK
     Dates: start: 20160101

REACTIONS (4)
  - Bone pain [Recovering/Resolving]
  - Neutropenia [Unknown]
  - Adjustment disorder [Recovered/Resolved]
  - Restlessness [Recovering/Resolving]

NARRATIVE: CASE EVENT DATE: 20240710
